FAERS Safety Report 9555408 (Version 1)
Quarter: 2013Q3

REPORT INFORMATION
  Report Type: Spontaneous
  Country: US (occurrence: None)
  Receive Date: 20130815
  Receipt Date: 20130815
  Transmission Date: 20140515
  Serious: Yes (Other)
  Sender: FDA-Public Use
  Company Number: ADR-2012-01650

PATIENT
  Age: 31 Year
  Sex: Male

DRUGS (3)
  1. BACLOFEN INTRATHECAL (BACLOFEN INJECTION) [Suspect]
     Indication: PAIN
  2. BACLOFEN INTRATHECAL (BACLOFEN INJECTION) [Suspect]
     Indication: PAIN
  3. DILAUDID (HYDROMORPHONE) [Concomitant]

REACTIONS (3)
  - Pain [None]
  - Pallor [None]
  - Body temperature increased [None]
